FAERS Safety Report 24892067 (Version 1)
Quarter: 2025Q1

REPORT INFORMATION
  Report Type: Spontaneous
  Country: US (occurrence: US)
  Receive Date: 20250128
  Receipt Date: 20250128
  Transmission Date: 20250409
  Serious: Yes (Hospitalization)
  Sender: STRIDES
  Company Number: US-STRIDES ARCOLAB LIMITED-2024SP001289

PATIENT

DRUGS (4)
  1. CALCITRIOL [Suspect]
     Active Substance: CALCITRIOL
     Indication: Product used for unknown indication
     Route: 064
  2. CALCITRIOL [Suspect]
     Active Substance: CALCITRIOL
     Route: 064
  3. CALCIUM [Suspect]
     Active Substance: CALCIUM
     Indication: Product used for unknown indication
     Route: 064
  4. CALCIUM [Suspect]
     Active Substance: CALCIUM
     Route: 064

REACTIONS (3)
  - Hypercalcaemia [Recovered/Resolved]
  - Hyperparathyroidism [Recovered/Resolved]
  - Foetal exposure during pregnancy [Unknown]
